FAERS Safety Report 9992775 (Version 3)
Quarter: 2014Q2

REPORT INFORMATION
  Report Type: Spontaneous
  Country: IT (occurrence: IT)
  Receive Date: 20140310
  Receipt Date: 20140421
  Transmission Date: 20141212
  Serious: Yes (Hospitalization)
  Sender: FDA-Public Use
  Company Number: IT-BRISTOL-MYERS SQUIBB COMPANY-20351466

PATIENT
  Age: 85 Year
  Sex: Female

DRUGS (4)
  1. COUMADIN TABS 5 MG [Suspect]
     Indication: ATRIAL FIBRILLATION
     Dosage: INTERUPTED ON-06FEB2014
     Route: 048
     Dates: start: 20031205
  2. DILATREND [Concomitant]
     Dosage: 25 MG TABS
     Route: 048
  3. EUTIROX [Concomitant]
     Dosage: 75 MCG TABS
     Route: 048
  4. LASIX [Concomitant]
     Dosage: 25 MG TABS
     Route: 048

REACTIONS (2)
  - Haematoma [Recovering/Resolving]
  - Fall [Recovering/Resolving]
